FAERS Safety Report 8435098-7 (Version None)
Quarter: 2012Q2

REPORT INFORMATION
  Report Type: 
  Country: None (occurrence: None)
  Receive Date: 20120614
  Receipt Date: 20120606
  Transmission Date: 20120825
  Serious: Yes (Other)
  Sender: FDA-Public Use
  Company Number: PHHY2012CA049413

PATIENT
  Sex: Female

DRUGS (6)
  1. ACETAMINOPHEN [Concomitant]
  2. TIMOPTIC [Concomitant]
  3. DOXEPIN [Concomitant]
  4. CITALOPRAM [Concomitant]
  5. GLEEVEC [Suspect]
     Indication: CHRONIC MYELOID LEUKAEMIA
     Dosage: 400 MG, DAILY
     Route: 048
  6. TRIAZIDE [Concomitant]

REACTIONS (11)
  - JOINT SWELLING [None]
  - PAIN IN EXTREMITY [None]
  - PAIN [None]
  - NEUROPATHY PERIPHERAL [None]
  - WEIGHT DECREASED [None]
  - HEPATIC STEATOSIS [None]
  - GLAUCOMA [None]
  - HYPERTENSION [None]
  - FIBROMYALGIA [None]
  - ARTHRALGIA [None]
  - LIGAMENT SPRAIN [None]
